FAERS Safety Report 9413050 (Version 1)
Quarter: 2013Q3

REPORT INFORMATION
  Report Type: Spontaneous
  Country: None (occurrence: None)
  Receive Date: 20130705
  Receipt Date: 20130705
  Transmission Date: 20140515
  Serious: Yes (Other)
  Sender: FDA-Public Use
  Company Number: 09-AUR-09483

PATIENT
  Age: 83 Year
  Sex: Female

DRUGS (7)
  1. GABAPENTIN (GABAPENTIN) [Suspect]
     Indication: NEURALGIA
  2. SINEMET [Concomitant]
  3. AMANTADIN (AMANTADINE) [Concomitant]
  4. KETIAPIN (QUETIAPINE)(QUETIAPINE) [Concomitant]
  5. SERTRALIN (SERTRALINE) [Concomitant]
  6. WARFARIN (WARFARIN) [Concomitant]
  7. PROPAFENON (PROPAFENONE) [Concomitant]

REACTIONS (2)
  - Rib fracture [None]
  - Ballismus [None]
